FAERS Safety Report 5894016-6 (Version None)
Quarter: 2008Q3

REPORT INFORMATION
  Report Type: 
  Country: None (occurrence: None)
  Receive Date: 20080923
  Receipt Date: 20080916
  Transmission Date: 20090109
  Serious: Yes (Other)
  Sender: FDA-Public Use
  Company Number: US-B.I. PHARMACEUTICALS,INC./RIDGEFIELD-2008-BP-14338BP

PATIENT
  Age: 16 Year
  Sex: Female

DRUGS (1)
  1. DULCOLAX [Suspect]
     Dosage: 205MG
     Route: 048
     Dates: start: 20080916

REACTIONS (6)
  - DIARRHOEA [None]
  - DIZZINESS [None]
  - DRUG ABUSE [None]
  - OVERDOSE [None]
  - PALLOR [None]
  - VOMITING [None]
